FAERS Safety Report 23145897 (Version 2)
Quarter: 2023Q4

REPORT INFORMATION
  Report Type: Spontaneous
  Country: US (occurrence: US)
  Receive Date: 20231104
  Receipt Date: 20231118
  Transmission Date: 20240110
  Serious: Yes (Death, Hospitalization, Other)
  Sender: FDA-Public Use
  Company Number: US-MACLEODS PHARMA EU LTD-MAC2023044087

PATIENT

DRUGS (6)
  1. CELECOXIB [Suspect]
     Active Substance: CELECOXIB
     Indication: Metastases to liver
     Dosage: 200 MILLIGRAM, QD
     Route: 065
     Dates: start: 20170726
  2. CELECOXIB [Suspect]
     Active Substance: CELECOXIB
     Indication: Nasal sinus cancer
     Dosage: 200 MILLIGRAM, QD
     Route: 065
     Dates: start: 20170816, end: 20170908
  3. PEMBROLIZUMAB [Concomitant]
     Active Substance: PEMBROLIZUMAB
     Indication: Metastases to liver
     Dosage: 10 MILLIGRAM/KILOGRAM (5 CYCLES, EVERY 3 WEEKS)
     Route: 065
     Dates: start: 20170503, end: 20170816
  4. PEMBROLIZUMAB [Concomitant]
     Active Substance: PEMBROLIZUMAB
     Indication: Nasal sinus cancer
     Dosage: 200 MILLIGRAM (EVERY 3 WEEKS)
     Route: 065
     Dates: start: 20170816, end: 20170908
  5. IPILIMUMAB [Concomitant]
     Active Substance: IPILIMUMAB
     Indication: Metastases to liver
     Dosage: 1 MILLIGRAM/KILOGRAM (EVERY 3 WEEKS)
     Route: 065
     Dates: start: 20170816, end: 20170908
  6. IPILIMUMAB [Concomitant]
     Active Substance: IPILIMUMAB
     Indication: Nasal sinus cancer

REACTIONS (8)
  - COVID-19 [Fatal]
  - Polyneuropathy [Unknown]
  - Asthenia [Unknown]
  - Inappropriate antidiuretic hormone secretion [Unknown]
  - Autoimmune dermatitis [Unknown]
  - Autoimmune hepatitis [Recovered/Resolved]
  - Decreased appetite [Unknown]
  - Liver function test increased [Recovered/Resolved]
